FAERS Safety Report 4891838-5 (Version None)
Quarter: 2006Q1

REPORT INFORMATION
  Report Type: 
  Country: None (occurrence: None)
  Receive Date: 20060123
  Receipt Date: 20060111
  Transmission Date: 20060701
  Serious: Yes (Death)
  Sender: FDA-Public Use
  Company Number: 430001L06TUR

PATIENT
  Age: 76 Year
  Sex: Female

DRUGS (2)
  1. MITOXANTRONE [Suspect]
     Indication: ACUTE MYELOID LEUKAEMIA
     Dosage: 10 MG/M2, 1 IN 1 DAYS,  INTRAVENOUS
     Route: 042
  2. CYTARABINE ARABINOSIDE (CYTARABINE) [Suspect]
     Indication: ACUTE MYELOID LEUKAEMIA
     Dosage: 100 MG/M2, 1 IN 12 HR, INTRAVENOUS
     Route: 042

REACTIONS (3)
  - BRADYCARDIA [None]
  - CARDIOTOXICITY [None]
  - SEPSIS [None]
